FAERS Safety Report 12138144 (Version 1)
Quarter: 2016Q1

REPORT INFORMATION
  Report Type: Report from Study
  Country: CO (occurrence: CO)
  Receive Date: 20160302
  Receipt Date: 20160302
  Transmission Date: 20160526
  Serious: Yes (Death)
  Sender: FDA-Public Use
  Company Number: CO-ASTRAZENECA-2016SE20032

PATIENT
  Age: 24590 Day
  Sex: Female

DRUGS (1)
  1. SYMBICORT [Suspect]
     Active Substance: BUDESONIDE\FORMOTEROL FUMARATE DIHYDRATE
     Dosage: BUDESONIDE/-FORMATEROL (160/4.5 MCG/DOSE),EVERY 12 HOURS
     Route: 055
     Dates: start: 20151108

REACTIONS (1)
  - Death [Fatal]

NARRATIVE: CASE EVENT DATE: 20160218
